FAERS Safety Report 25159712 (Version 1)
Quarter: 2025Q2

REPORT INFORMATION
  Report Type: Spontaneous
  Country: LB (occurrence: LB)
  Receive Date: 20250404
  Receipt Date: 20250404
  Transmission Date: 20250717
  Serious: Yes (Other)
  Sender: RANBAXY
  Company Number: LB-SUN PHARMACEUTICAL INDUSTRIES LTD-2025R1-501673

PATIENT
  Age: 35 Year
  Sex: Male

DRUGS (3)
  1. CARBOPLATIN [Suspect]
     Active Substance: CARBOPLATIN
     Indication: Chemotherapy
     Route: 065
  2. IRINOTECAN [Suspect]
     Active Substance: IRINOTECAN
     Indication: Chemotherapy
     Route: 065
  3. ALECTINIB [Suspect]
     Active Substance: ALECTINIB
     Indication: Chemotherapy
     Route: 065

REACTIONS (1)
  - Therapy partial responder [Unknown]
